FAERS Safety Report 8946086 (Version 1)
Quarter: 2012Q4

REPORT INFORMATION
  Report Type: 
  Country: US (occurrence: US)
  Receive Date: 20121204
  Receipt Date: 20121204
  Transmission Date: 20130627
  Serious: No
  Sender: FDA-Public Use
  Company Number: US-AMGEN-USASP2012064505

PATIENT
  Age: 67 Year
  Sex: Female

DRUGS (2)
  1. ENBREL [Suspect]
     Indication: RHEUMATOID ARTHRITIS
     Dosage: UNK
     Dates: start: 20050301
  2. ENBREL [Suspect]

REACTIONS (6)
  - Arthropathy [Not Recovered/Not Resolved]
  - Joint effusion [Unknown]
  - Tendon disorder [Unknown]
  - Bone disorder [Unknown]
  - Joint crepitation [Unknown]
  - Synovial fluid white blood cells positive [Unknown]
